FAERS Safety Report 18364559 (Version 7)
Quarter: 2021Q1

REPORT INFORMATION
  Report Type: Report from Study
  Country: US (occurrence: US)
  Receive Date: 20201009
  Receipt Date: 20210217
  Transmission Date: 20210419
  Serious: Yes (Death, Hospitalization)
  Sender: FDA-Public Use
  Company Number: NVSC2020US267154

PATIENT
  Age: 2 Year
  Sex: Female
  Weight: 10.9 kg

DRUGS (3)
  1. CEFTAZIDIME. [Concomitant]
     Active Substance: CEFTAZIDIME
     Indication: PRODUCT USED FOR UNKNOWN INDICATION
     Dosage: 540 MG
     Route: 065
     Dates: start: 20201014
  2. BACTRIM [Concomitant]
     Active Substance: SULFAMETHOXAZOLE\TRIMETHOPRIM
     Indication: PRODUCT USED FOR UNKNOWN INDICATION
     Dosage: 80 MG, BID
     Route: 065
     Dates: start: 20200915, end: 20200927
  3. ZOLGENSMA [Suspect]
     Active Substance: ONASEMNOGENE ABEPARVOVEC-XIOI
     Indication: SPINAL MUSCULAR ATROPHY
     Dosage: 25.7 ML, ONCE/SINGLE (5.14 E14VG)
     Route: 042
     Dates: start: 20190115

REACTIONS (10)
  - Dyspnoea [Fatal]
  - Oxygen saturation decreased [Fatal]
  - Acinetobacter test positive [Recovered/Resolved]
  - Streptococcus test positive [Recovered/Resolved]
  - Respiratory failure [Fatal]
  - Pyrexia [Fatal]
  - Stenotrophomonas infection [Recovered/Resolved]
  - Pyrexia [Recovered/Resolved]
  - Respiratory syncytial virus test positive [Recovered/Resolved]
  - Dyspnoea [Recovered/Resolved]

NARRATIVE: CASE EVENT DATE: 20200912
